FAERS Safety Report 15034211 (Version 2)
Quarter: 2018Q2

REPORT INFORMATION
  Report Type: Spontaneous
  Country: JP (occurrence: JP)
  Receive Date: 20180620
  Receipt Date: 20180621
  Transmission Date: 20180711
  Serious: Yes (Hospitalization, Other)
  Sender: FDA-Public Use
  Company Number: JP-ROCHE-2142115

PATIENT
  Age: 44 Year
  Sex: Male

DRUGS (2)
  1. AVASTIN [Suspect]
     Active Substance: BEVACIZUMAB
     Indication: ASTROCYTOMA
     Route: 041
  2. TEMOZOLOMIDE. [Concomitant]
     Active Substance: TEMOZOLOMIDE
     Indication: ASTROCYTOMA
     Dosage: DOSE INTERVAL UNCERTAINTY
     Route: 065

REACTIONS (4)
  - Malnutrition [Unknown]
  - Decubitus ulcer [Unknown]
  - Off label use [Unknown]
  - Septic shock [Unknown]
